FAERS Safety Report 4693757-6 (Version None)
Quarter: 2005Q2

REPORT INFORMATION
  Report Type: 
  Country: None (occurrence: None)
  Receive Date: 20050616
  Receipt Date: 20050607
  Transmission Date: 20051028
  Serious: Yes (Other)
  Sender: FDA-Public Use
  Company Number: 2005-06-0472

PATIENT
  Age: 46 Year
  Sex: Male

DRUGS (1)
  1. INTERFERON ALFA INJECTABLE [Suspect]
     Indication: CHRONIC MYELOID LEUKAEMIA
     Dosage: 5-8 MU QD SUBCUTANEOUS

REACTIONS (5)
  - DISEASE PROGRESSION [None]
  - GANGRENE [None]
  - SKIN ULCER [None]
  - STEM CELL TRANSPLANT [None]
  - TOE AMPUTATION [None]
